FAERS Safety Report 24625843 (Version 1)
Quarter: 2024Q4

REPORT INFORMATION
  Report Type: Spontaneous
  Country: US (occurrence: US)
  Receive Date: 20241115
  Receipt Date: 20241115
  Transmission Date: 20250115
  Serious: No
  Sender: ANI
  Company Number: US-ANIPHARMA-2024-US-053727

PATIENT
  Age: 51 Year
  Sex: Female
  Weight: 65.77 kg

DRUGS (13)
  1. CORTICOTROPIN [Suspect]
     Active Substance: CORTICOTROPIN
     Indication: Optic neuritis
     Dosage: 1ML INJECTIONS ONCE DAILY
     Route: 058
     Dates: start: 20240926, end: 20241002
  2. METOPROLOL [Concomitant]
     Active Substance: METOPROLOL
  3. FLEXERIL [Concomitant]
     Active Substance: CYCLOBENZAPRINE HYDROCHLORIDE
  4. Amitripytline [Concomitant]
  5. FOLIC ACID [Concomitant]
     Active Substance: FOLIC ACID
  6. DULOXETINE [Concomitant]
     Active Substance: DULOXETINE
  7. OMEPRAZOLE [Concomitant]
     Active Substance: OMEPRAZOLE
  8. SUCRALFATE [Concomitant]
     Active Substance: SUCRALFATE
  9. VITAMINS [Concomitant]
     Active Substance: VITAMINS
  10. CALCIUM [Concomitant]
     Active Substance: CALCIUM
  11. ENBREL [Concomitant]
     Active Substance: ETANERCEPT
  12. ATORVASTATIN [Concomitant]
     Active Substance: ATORVASTATIN
  13. METHOTREXATE [Concomitant]
     Active Substance: METHOTREXATE

REACTIONS (3)
  - Swelling face [Not Recovered/Not Resolved]
  - Peripheral swelling [Not Recovered/Not Resolved]
  - Periorbital swelling [Not Recovered/Not Resolved]

NARRATIVE: CASE EVENT DATE: 20240929
